FAERS Safety Report 21513558 (Version 1)
Quarter: 2022Q4

REPORT INFORMATION
  Report Type: Spontaneous
  Country: US (occurrence: US)
  Receive Date: 20221027
  Receipt Date: 20221027
  Transmission Date: 20230112
  Serious: No
  Sender: FDA-Public Use
  Company Number: US-CYCLE PHARMACEUTICALS LTD-2022-CYC-000016

PATIENT

DRUGS (2)
  1. NITYR [Suspect]
     Active Substance: NITISINONE
     Indication: Tyrosinaemia
     Dosage: 25 MG, QD (10MG, 5MG)
     Route: 048
  2. NITYR [Suspect]
     Active Substance: NITISINONE
     Indication: Tyrosinaemia
     Dosage: 25 MG, QD (10MG, 5MG)
     Route: 048

REACTIONS (2)
  - Amino acid level increased [Unknown]
  - Product administration error [Unknown]
